FAERS Safety Report 10261644 (Version 1)
Quarter: 2014Q2

REPORT INFORMATION
  Report Type: Spontaneous
  Country: IT (occurrence: IT)
  Receive Date: 20140626
  Receipt Date: 20140626
  Transmission Date: 20141212
  Serious: Yes (Hospitalization)
  Sender: FDA-Public Use
  Company Number: IT-TEVA-489490ISR

PATIENT
  Age: 25 Year
  Sex: Male

DRUGS (6)
  1. RIBAVIRIN [Suspect]
     Indication: HEPATITIS C
     Dosage: 1400 MILLIGRAM DAILY; (18 MG/KG/DAY)
     Route: 048
  2. PEGINTERFERON ALFA-2A [Suspect]
     Indication: HEPATITIS C
     Route: 058
  3. SERTRALINE [Concomitant]
     Indication: OBSESSIVE-COMPULSIVE DISORDER
     Route: 065
  4. LAMOTRIGINE [Concomitant]
     Indication: OBSESSIVE-COMPULSIVE DISORDER
     Route: 065
  5. LORAZEPAM [Concomitant]
     Indication: OBSESSIVE-COMPULSIVE DISORDER
     Route: 065
  6. METHADONE [Concomitant]
     Indication: DRUG DEPENDENCE
     Route: 065

REACTIONS (2)
  - Anaemia [Unknown]
  - Obsessive-compulsive disorder [Unknown]
